FAERS Safety Report 7516200-8 (Version None)
Quarter: 2011Q2

REPORT INFORMATION
  Report Type: 
  Country: None (occurrence: None)
  Receive Date: 20110601
  Receipt Date: 20110527
  Transmission Date: 20111010
  Serious: Yes (Other)
  Sender: FDA-Public Use
  Company Number: US-PFIZER INC-2011115509

PATIENT
  Age: 28 Year
  Sex: Male

DRUGS (3)
  1. LITHIUM [Concomitant]
     Dosage: UNK
  2. GEODON [Suspect]
     Dosage: 80 MG, 2X/DAY
     Route: 048
  3. DEPAKOTE [Concomitant]
     Dosage: UNK
     Route: 048

REACTIONS (2)
  - PARKINSONISM [None]
  - SEDATION [None]
